FAERS Safety Report 5792073-9 (Version None)
Quarter: 2008Q2

REPORT INFORMATION
  Report Type: 
  Country: None (occurrence: None)
  Receive Date: 20080626
  Receipt Date: 20080313
  Transmission Date: 20081010
  Serious: No
  Sender: FDA-Public Use
  Company Number: US-ASTRAZENECA-2008UW05075

PATIENT
  Age: 49 Year
  Sex: Male

DRUGS (8)
  1. PULMICORT RESPULES [Suspect]
     Indication: CHRONIC SINUSITIS
     Dosage: 1 MG/2ML
     Route: 055
  2. LEXAPRO [Concomitant]
  3. GEODON [Concomitant]
  4. RESTORIL [Concomitant]
  5. DIAZEPAM [Concomitant]
  6. NEURONTIN [Concomitant]
  7. COGENTIN [Concomitant]
  8. CENTURAS [Concomitant]

REACTIONS (3)
  - OFF LABEL USE [None]
  - PALPITATIONS [None]
  - WRONG TECHNIQUE IN DRUG USAGE PROCESS [None]
